FAERS Safety Report 8546303 (Version 2)
Quarter: 2013Q1

REPORT INFORMATION
  Report Type: Report from Study
  Country: JP (occurrence: JP)
  Receive Date: 20120504
  Receipt Date: 20130314
  Transmission Date: 20140127
  Serious: Yes (Hospitalization)
  Sender: FDA-Public Use
  Company Number: PHHY2012JP036406

PATIENT
  Sex: Male

DRUGS (3)
  1. AMN107 [Suspect]
     Indication: CHRONIC MYELOID LEUKAEMIA
     Dosage: 400 MG
     Route: 048
     Dates: start: 20090717, end: 20090730
  2. AMN107 [Suspect]
     Dosage: 200 MG
     Route: 048
     Dates: start: 20090821, end: 20110211
  3. TAKEPRON [Concomitant]
     Dosage: 15 MG
     Route: 048
     Dates: start: 20071102, end: 20091127

REACTIONS (1)
  - Pneumonia [Not Recovered/Not Resolved]
